FAERS Safety Report 7712624-4 (Version None)
Quarter: 2011Q3

REPORT INFORMATION
  Report Type: 
  Country: None (occurrence: None)
  Receive Date: 20110826
  Receipt Date: 20110818
  Transmission Date: 20111222
  Serious: Yes (Other)
  Sender: FDA-Public Use
  Company Number: JP-JNJFOC-20110804199

PATIENT
  Sex: Male

DRUGS (2)
  1. NIZORAL [Suspect]
     Indication: SEBORRHOEIC DERMATITIS
     Route: 061
  2. HIRUDOID CREAM [Concomitant]
     Route: 065

REACTIONS (1)
  - LEUKODERMA [None]
